FAERS Safety Report 19571484 (Version 1)
Quarter: 2021Q3

REPORT INFORMATION
  Report Type: Spontaneous
  Country: CN (occurrence: CN)
  Receive Date: 20210716
  Receipt Date: 20210716
  Transmission Date: 20211014
  Serious: Yes (Hospitalization, Other)
  Sender: FDA-Public Use
  Company Number: CN-GLAXOSMITHKLINE-CN2021APC150641

PATIENT
  Age: 36 Year
  Sex: Male
  Weight: 91 kg

DRUGS (8)
  1. LAMOTRIGINE. [Suspect]
     Active Substance: LAMOTRIGINE
     Indication: AFFECTIVE DISORDER
     Dosage: 50 MG, BID
     Route: 048
     Dates: start: 20210608, end: 20210625
  2. QUETIAPINE FUMARATE. [Concomitant]
     Active Substance: QUETIAPINE FUMARATE
     Dosage: 0.4 G, QD
     Route: 048
     Dates: start: 20210608, end: 20210701
  3. QUETIAPINE FUMARATE. [Concomitant]
     Active Substance: QUETIAPINE FUMARATE
     Indication: SCHIZOPHRENIA
     Dosage: .2 G, QD
     Route: 048
     Dates: start: 20210608, end: 20210701
  4. LITHIUM CARBONATE. [Concomitant]
     Active Substance: LITHIUM CARBONATE
     Dosage: 0.6 G, QD, EVENING
     Route: 048
     Dates: end: 20210701
  5. ALLOPURINOL. [Suspect]
     Active Substance: ALLOPURINOL
     Indication: HYPERURICAEMIA
     Dosage: .1 G, QD
     Route: 048
     Dates: start: 20210609, end: 20210625
  6. VALPROATE SODIUM. [Concomitant]
     Active Substance: VALPROATE SODIUM
     Indication: AFFECTIVE DISORDER
     Dosage: 1 G, QD
     Route: 048
     Dates: start: 20210608
  7. VALPROATE SODIUM. [Concomitant]
     Active Substance: VALPROATE SODIUM
     Dosage: 0.5 G, QD
     Route: 048
     Dates: end: 20210628
  8. LITHIUM CARBONATE. [Concomitant]
     Active Substance: LITHIUM CARBONATE
     Indication: AFFECTIVE DISORDER
     Dosage: .3 G, QD, MORNING
     Route: 048
     Dates: start: 20210608

REACTIONS (6)
  - Erythema multiforme [Recovering/Resolving]
  - Discomfort [Recovering/Resolving]
  - Urticaria [Recovering/Resolving]
  - Dermatitis allergic [Recovering/Resolving]
  - Rash [Recovering/Resolving]
  - Pruritus [Recovering/Resolving]

NARRATIVE: CASE EVENT DATE: 20210625
